FAERS Safety Report 22620367 (Version 1)
Quarter: 2023Q2

REPORT INFORMATION
  Report Type: Spontaneous
  Country: US (occurrence: US)
  Receive Date: 20230620
  Receipt Date: 20230620
  Transmission Date: 20230721
  Serious: Yes (Other)
  Sender: FDA-Public Use
  Company Number: US-AMERICAN REGENT INC-2023001467

PATIENT
  Age: 62 Year
  Sex: Male

DRUGS (3)
  1. PAMIDRONATE DISODIUM [Suspect]
     Active Substance: PAMIDRONATE DISODIUM
     Indication: Hypercalcaemia of malignancy
     Dosage: 90 MILLIGRAM
     Route: 042
  2. PAMIDRONATE DISODIUM [Suspect]
     Active Substance: PAMIDRONATE DISODIUM
     Dosage: 90 MILLIGRAM
     Route: 042
  3. SODIUM CHLORIDE [Concomitant]
     Active Substance: SODIUM CHLORIDE
     Indication: Hypercalcaemia of malignancy
     Dosage: UNK
     Route: 042

REACTIONS (2)
  - Hypercalcaemia of malignancy [Recovered/Resolved]
  - Drug ineffective [Recovered/Resolved]
